FAERS Safety Report 25788869 (Version 1)
Quarter: 2025Q3

REPORT INFORMATION
  Report Type: Report from Study
  Country: CA (occurrence: CA)
  Receive Date: 20250911
  Receipt Date: 20250911
  Transmission Date: 20251021
  Serious: Yes (Other)
  Sender: NOVARTIS
  Company Number: CA-002147023-NVSC2025CA140206

PATIENT
  Age: 54 Year
  Sex: Female

DRUGS (1)
  1. KISQALI [Suspect]
     Active Substance: RIBOCICLIB SUCCINATE
     Indication: Breast cancer metastatic
     Dosage: 600 MG, QD (TRANS-THERAPEUTIC-SYSTEM)
     Route: 048
     Dates: start: 20250823

REACTIONS (9)
  - Spinal cord compression [Unknown]
  - Neoplasm [Unknown]
  - Fatigue [Unknown]
  - Hypoaesthesia [Unknown]
  - Pain in extremity [Unknown]
  - Mobility decreased [Unknown]
  - Hypersomnia [Unknown]
  - Musculoskeletal chest pain [Unknown]
  - Gait inability [Unknown]
